FAERS Safety Report 13740699 (Version 1)
Quarter: 2017Q3

REPORT INFORMATION
  Report Type: Spontaneous
  Country: US (occurrence: US)
  Receive Date: 20170710
  Receipt Date: 20170710
  Transmission Date: 20171127
  Serious: No
  Sender: FDA-Public Use
  Company Number: None

PATIENT
  Age: 38 Year
  Sex: Male
  Weight: 76.5 kg

DRUGS (1)
  1. VANCOMYCIN [Suspect]
     Active Substance: VANCOMYCIN
     Indication: OSTEOMYELITIS
     Dosage: ?          OTHER DOSE:GM;OTHER FREQUENCY:QOD;?
     Route: 041
     Dates: start: 20170609, end: 20170612

REACTIONS (3)
  - Discomfort [None]
  - Erythema [None]
  - Oedema peripheral [None]

NARRATIVE: CASE EVENT DATE: 20170613
